FAERS Safety Report 6660051 (Version 4)
Quarter: 2018Q4

REPORT INFORMATION
  Report Type: Spontaneous
  Country: JP (occurrence: JP)
  Receive Date: 20080609
  Receipt Date: 20181109
  Transmission Date: 20190205
  Serious: Yes (Death, Other)
  Sender: FDA-Public Use
  Company Number: PHHY2008JP09135

PATIENT
  Age: 52 Year
  Sex: Female
  Weight: 50.5 kg

DRUGS (5)
  1. GLIVEC [Suspect]
     Active Substance: IMATINIB MESYLATE
     Indication: ACUTE LYMPHOCYTIC LEUKAEMIA
     Route: 048
  2. VINCRISTINE [Concomitant]
     Active Substance: VINCRISTINE
     Indication: PRODUCT USED FOR UNKNOWN INDICATION
     Route: 065
  3. PREDNISOLONE. [Concomitant]
     Active Substance: PREDNISOLONE
     Indication: PRODUCT USED FOR UNKNOWN INDICATION
     Route: 065
  4. CYCLOPHOSPHAMIDE. [Concomitant]
     Active Substance: CYCLOPHOSPHAMIDE
     Indication: PRODUCT USED FOR UNKNOWN INDICATION
     Route: 065
  5. DOXORUBICIN [Concomitant]
     Active Substance: DOXORUBICIN
     Indication: PRODUCT USED FOR UNKNOWN INDICATION
     Route: 065

REACTIONS (16)
  - Ventricular fibrillation [Fatal]
  - Ileus paralytic [Unknown]
  - Purpura [Unknown]
  - Bradycardia [Fatal]
  - Mucormycosis [Unknown]
  - Electrocardiogram abnormal [Fatal]
  - Pyrexia [Unknown]
  - Constipation [Unknown]
  - Acute myocardial infarction [Fatal]
  - Shock [Fatal]
  - Infection [Fatal]
  - Troponin increased [Fatal]
  - Abdominal pain [Unknown]
  - Induration [Unknown]
  - Febrile neutropenia [Unknown]
  - Ventricular tachycardia [Fatal]
